FAERS Safety Report 15930236 (Version 2)
Quarter: 2019Q1

REPORT INFORMATION
  Report Type: Report from Study
  Country: US (occurrence: US)
  Receive Date: 20190207
  Receipt Date: 20190325
  Transmission Date: 20190417
  Serious: Yes (Other)
  Sender: FDA-Public Use
  Company Number: US-ROCHE-1950511

PATIENT

DRUGS (1)
  1. ALTEPLASE. [Suspect]
     Active Substance: ALTEPLASE
     Indication: CEREBRAL HAEMORRHAGE
     Route: 065

REACTIONS (3)
  - Pneumonia [Recovered/Resolved]
  - Subdural haematoma [Recovered/Resolved]
  - CSF volume increased [Recovered/Resolved]

NARRATIVE: CASE EVENT DATE: 20161109
